FAERS Safety Report 21090918 (Version 1)
Quarter: 2022Q3

REPORT INFORMATION
  Report Type: Spontaneous
  Country: FR (occurrence: FR)
  Receive Date: 20220716
  Receipt Date: 20220716
  Transmission Date: 20221027
  Serious: Yes (Hospitalization)
  Sender: FDA-Public Use
  Company Number: None

PATIENT
  Age: 65 Year
  Sex: Male
  Weight: 82 kg

DRUGS (3)
  1. VALGANCICLOVIR [Suspect]
     Active Substance: VALGANCICLOVIR
     Indication: Antiviral prophylaxis
     Dosage: DURATION : 3 MONTHS
     Route: 065
     Dates: start: 202102, end: 20210517
  2. CELLCEPT [Suspect]
     Active Substance: MYCOPHENOLATE MOFETIL
     Indication: Prophylaxis against transplant rejection
     Dosage: FREQUENCY TIME : 1 DAY, DURATION : 140 DAYS, UNIT DOSE : 2G
     Route: 065
     Dates: start: 2021, end: 20210521
  3. PROGRAF [Suspect]
     Active Substance: TACROLIMUS
     Indication: Prophylaxis against transplant rejection
     Dosage: UNIT DOSE : 5MG, DURATION :3MONTHS, FREQUENCY TIME : 1 DAY
     Route: 065
     Dates: start: 202102, end: 20210517

REACTIONS (2)
  - Agranulocytosis [Recovered/Resolved]
  - Aphthous ulcer [Recovered/Resolved]

NARRATIVE: CASE EVENT DATE: 20210501
